FAERS Safety Report 5584749-3 (Version None)
Quarter: 2008Q1

REPORT INFORMATION
  Report Type: 
  Country: None (occurrence: None)
  Receive Date: 20080103
  Receipt Date: 20071218
  Transmission Date: 20080703
  Serious: Yes (Other)
  Sender: FDA-Public Use
  Company Number: 2007JP005246

PATIENT
  Age: 73 Year
  Sex: Female
  Weight: 39 kg

DRUGS (6)
  1. PROGRAF [Suspect]
     Indication: RHEUMATOID ARTHRITIS
     Dosage: 1.5 MG, UID/QD, ORAL
     Route: 048
     Dates: start: 20070214, end: 20070405
  2. METHOTREXATE [Concomitant]
  3. PREDNISOLONE [Concomitant]
  4. ALFAROL (ALFACALCIDOL) CAPSULE [Concomitant]
  5. FERROMIA (FERROUS CITRATE) TABLET [Concomitant]
  6. NEUROTROPIN (ORGAN LYSATE, STANDARDIZED) TABLET [Concomitant]

REACTIONS (1)
  - PROTEINURIA [None]
